FAERS Safety Report 15392472 (Version 1)
Quarter: 2018Q3

REPORT INFORMATION
  Report Type: Report from Study
  Country: None (occurrence: US)
  Receive Date: 20180917
  Receipt Date: 20180917
  Transmission Date: 20181010
  Serious: Yes (Other)
  Sender: FDA-Public Use
  Company Number: US-ABBVIE-18K-163-2400891-00

PATIENT
  Age: 42 Year
  Sex: Female

DRUGS (1)
  1. HUMIRA [Suspect]
     Active Substance: ADALIMUMAB
     Indication: CROHN^S DISEASE
     Route: 058

REACTIONS (6)
  - Exposure during pregnancy [Unknown]
  - Adhesion [Unknown]
  - Chromosomal deletion [Unknown]
  - Crohn^s disease [Unknown]
  - Foetal placental thrombosis [Unknown]
  - Fistula [Unknown]

NARRATIVE: CASE EVENT DATE: 201806
